FAERS Safety Report 6283198-2 (Version None)
Quarter: 2009Q3

REPORT INFORMATION
  Report Type: 
  Country: None (occurrence: None)
  Receive Date: 20090724
  Receipt Date: 20090716
  Transmission Date: 20100115
  Serious: Yes (Hospitalization)
  Sender: FDA-Public Use
  Company Number: D0062328A

PATIENT
  Age: 13 Year
  Sex: Female

DRUGS (3)
  1. RELENZA [Suspect]
     Dosage: 5MG SINGLE DOSE
     Route: 055
  2. IBUPROFEN [Suspect]
     Route: 065
  3. NORDETTE-28 [Suspect]
     Indication: ORAL CONTRACEPTION
     Route: 048

REACTIONS (4)
  - DYSPNOEA [None]
  - PHARYNGEAL OEDEMA [None]
  - RENAL FAILURE ACUTE [None]
  - SWOLLEN TONGUE [None]
